FAERS Safety Report 12859154 (Version 1)
Quarter: 2016Q4

REPORT INFORMATION
  Report Type: Spontaneous
  Country: ZA (occurrence: ZA)
  Receive Date: 20161018
  Receipt Date: 20161018
  Transmission Date: 20170207
  Serious: Yes (Death, Hospitalization, Other)
  Sender: FDA-Public Use
  Company Number: ZA-CMP PHARMA-2016CMP00033

PATIENT
  Age: 21 Year
  Sex: Female

DRUGS (3)
  1. ISONIAZID/RIFAMPIN [Suspect]
     Active Substance: ISONIAZID\RIFAMPIN
     Indication: TUBERCULOSIS
     Dosage: UNK
     Route: 065
  2. ISONIAZID/RIFAMPIN [Suspect]
     Active Substance: ISONIAZID\RIFAMPIN
     Dosage: 5,250 MG/10,500 MG, UNK
     Route: 048
  3. ANTIRETROVIRAL TREATMENT [Concomitant]
     Route: 065

REACTIONS (3)
  - Acute kidney injury [Recovered/Resolved]
  - Intentional overdose [Fatal]
  - Toxicity to various agents [Fatal]
